FAERS Safety Report 13706172 (Version 1)
Quarter: 2017Q2

REPORT INFORMATION
  Report Type: Spontaneous
  Country: US (occurrence: US)
  Receive Date: 20170630
  Receipt Date: 20170630
  Transmission Date: 20170830
  Serious: No
  Sender: FDA-Public Use
  Company Number: US-ASTRAZENECA-2017SE67203

PATIENT
  Age: 68 Year

DRUGS (1)
  1. BYDUREON [Suspect]
     Active Substance: EXENATIDE
     Route: 058
     Dates: start: 2017

REACTIONS (2)
  - Hepatic enzyme increased [Unknown]
  - Pancreatitis [Unknown]

NARRATIVE: CASE EVENT DATE: 2017
